FAERS Safety Report 24160724 (Version 1)
Quarter: 2024Q3

REPORT INFORMATION
  Report Type: Spontaneous
  Country: KR (occurrence: KR)
  Receive Date: 20240801
  Receipt Date: 20240801
  Transmission Date: 20241016
  Serious: Yes (Other)
  Sender: BRISTOL MYERS SQUIBB
  Company Number: KR-BRISTOL-MYERS SQUIBB COMPANY-2024-117862

PATIENT
  Age: 66 Year
  Sex: Male
  Weight: 72 kg

DRUGS (22)
  1. BARACLUDE [Suspect]
     Active Substance: ENTECAVIR
     Indication: Product used for unknown indication
  2. RITUXIMAB [Suspect]
     Active Substance: RITUXIMAB
     Indication: Product used for unknown indication
     Dates: start: 20180314
  3. FLUBENDAZOLE [Concomitant]
     Active Substance: FLUBENDAZOLE
     Dates: start: 20180203, end: 20180417
  4. FAMOTIDINE [Concomitant]
     Active Substance: FAMOTIDINE
  5. FLUCONAZOLE [Concomitant]
     Active Substance: FLUCONAZOLE
     Dates: start: 20180306, end: 20180409
  6. LEVOFLOXACIN [Concomitant]
     Active Substance: LEVOFLOXACIN
     Dates: start: 20180305, end: 20180409
  7. SUCRALFATE [Concomitant]
     Active Substance: SUCRALFATE
     Dates: start: 20180314, end: 20180426
  8. RANITIDINE HYDROCHLORIDE [Concomitant]
     Active Substance: RANITIDINE HYDROCHLORIDE
     Dates: start: 20180314, end: 20180426
  9. CHLORHEXIDINE GLUCONATE [Concomitant]
     Active Substance: CHLORHEXIDINE GLUCONATE
     Dates: start: 20180314
  10. ALLOPURINOL [Concomitant]
     Active Substance: ALLOPURINOL
     Dates: start: 20180307, end: 20180316
  11. URSODIOL [Concomitant]
     Active Substance: URSODIOL
     Dates: start: 20180305, end: 20180328
  12. SODIUM BICARBONATE [Concomitant]
     Active Substance: SODIUM BICARBONATE
     Dates: start: 20180314, end: 20180411
  13. OXYCODONE HYDROCHLORIDE [Concomitant]
     Active Substance: OXYCODONE HYDROCHLORIDE
     Dates: start: 20180204
  14. MEGESTROL ACETATE [Concomitant]
     Active Substance: MEGESTROL ACETATE
     Dates: start: 20180317, end: 20180417
  15. CARVEDILOL [Concomitant]
     Active Substance: CARVEDILOL
     Dates: start: 20120924, end: 20180326
  16. ASPIRIN [Concomitant]
     Active Substance: ASPIRIN
     Dates: start: 20120924
  17. EZETIMIBE [Concomitant]
     Active Substance: EZETIMIBE
     Dates: start: 20160620
  18. SIMVASTATIN [Concomitant]
     Active Substance: SIMVASTATIN
     Dates: start: 20160620
  19. MAGNESIUM HYDROXIDE [Concomitant]
     Active Substance: MAGNESIUM HYDROXIDE
     Dates: start: 20180210
  20. CYCLOPHOSPHAMIDE [Concomitant]
     Active Substance: CYCLOPHOSPHAMIDE
     Dates: start: 20180314, end: 20180318
  21. PREDNISOLONE [Concomitant]
     Active Substance: PREDNISOLONE
     Dates: start: 20180314, end: 20180318
  22. DOXORUBICIN HYDROCHLORIDE [Concomitant]
     Active Substance: DOXORUBICIN HYDROCHLORIDE
     Dates: start: 20180314, end: 20180318

REACTIONS (1)
  - Neutropenia [Recovered/Resolved]

NARRATIVE: CASE EVENT DATE: 20180320
